FAERS Safety Report 11286580 (Version 1)
Quarter: 2015Q3

REPORT INFORMATION
  Report Type: Spontaneous
  Country: US (occurrence: US)
  Receive Date: 20150721
  Receipt Date: 20150721
  Transmission Date: 20151125
  Serious: No
  Sender: FDA-Public Use
  Company Number: US-UNITED THERAPEUTICS-UNT-2015-003185

PATIENT
  Age: 51 Year
  Sex: Female
  Weight: 86.17 kg

DRUGS (3)
  1. VENTAVIS [Concomitant]
     Active Substance: ILOPROST
     Indication: PRODUCT USED FOR UNKNOWN INDICATION
  2. SILDENAFIL. [Concomitant]
     Active Substance: SILDENAFIL
     Indication: PRODUCT USED FOR UNKNOWN INDICATION
  3. TYVASO [Suspect]
     Active Substance: TREPROSTINIL
     Indication: PULMONARY HYPERTENSION
     Dosage: 18-54 MICROGRAMS, QID
     Dates: start: 20150317

REACTIONS (8)
  - Throat tightness [Recovered/Resolved]
  - Chest discomfort [Unknown]
  - Paraesthesia [Unknown]
  - Oropharyngeal pain [Unknown]
  - Pain in jaw [Recovering/Resolving]
  - Headache [Unknown]
  - Cough [Recovered/Resolved]
  - Muscle spasms [Unknown]

NARRATIVE: CASE EVENT DATE: 201503
